FAERS Safety Report 10173030 (Version 1)
Quarter: 2014Q2

REPORT INFORMATION
  Report Type: Spontaneous
  Country: FR (occurrence: None)
  Receive Date: 20140513
  Receipt Date: 20140513
  Transmission Date: 20141212
  Serious: Yes (Hospitalization, Disabling)
  Sender: FDA-Public Use
  Company Number: A02200900307

PATIENT
  Age: 75 Year
  Sex: Male

DRUGS (12)
  1. BI-TILDIEM [Suspect]
     Indication: PRODUCT USED FOR UNKNOWN INDICATION
     Route: 048
  2. LASILIX [Suspect]
     Indication: HYPERTENSION
     Route: 048
  3. NICORANDIL [Suspect]
     Indication: PRODUCT USED FOR UNKNOWN INDICATION
     Route: 048
  4. ALDACTONE [Suspect]
     Indication: PRODUCT USED FOR UNKNOWN INDICATION
     Route: 048
  5. DISCOTRINE (GLYCERYL TRINITRATE) [Suspect]
     Indication: PRODUCT USED FOR UNKNOWN INDICATION
     Route: 048
  6. SIMVASTATIN [Concomitant]
  7. DIAMICRON [Concomitant]
  8. ZOLPIDEM [Concomitant]
  9. OMEPRAZOLE [Concomitant]
  10. CORTANCYL [Concomitant]
  11. KALEORID [Concomitant]
  12. INIPOMP [Concomitant]

REACTIONS (5)
  - Fall [None]
  - Tibia fracture [None]
  - Confusional state [None]
  - Agitation [None]
  - Drug interaction [None]
